FAERS Safety Report 22101242 (Version 1)
Quarter: 2023Q1

REPORT INFORMATION
  Report Type: Spontaneous
  Country: FR (occurrence: FR)
  Receive Date: 20230316
  Receipt Date: 20230316
  Transmission Date: 20230417
  Serious: Yes (Other)
  Sender: FDA-Public Use
  Company Number: FR-CELLTRION INC.-2022FR022310

PATIENT

DRUGS (1)
  1. INFLIXIMAB [Suspect]
     Active Substance: INFLIXIMAB
     Indication: Uveitis
     Dosage: 5 MG/KG, CYCLIC (AT WEEKS 0, 2, 6, AND EVERY 4 TO 6 WEEKS)
     Route: 042

REACTIONS (2)
  - Meningitis [Unknown]
  - Drug effective for unapproved indication [Unknown]
